FAERS Safety Report 9374798 (Version 1)
Quarter: 2013Q2

REPORT INFORMATION
  Report Type: Spontaneous
  Country: CA (occurrence: CA)
  Receive Date: 20130628
  Receipt Date: 20130628
  Transmission Date: 20140414
  Serious: Yes (Other)
  Sender: FDA-Public Use
  Company Number: CA-TEVA-415596USA

PATIENT
  Sex: Female

DRUGS (2)
  1. CARBAMAZEPINE [Suspect]
     Indication: BIPOLAR I DISORDER
     Route: 065
  2. TEGRETOL [Suspect]
     Indication: BIPOLAR I DISORDER

REACTIONS (1)
  - Cerebrovascular accident [Unknown]
